FAERS Safety Report 23630388 (Version 2)
Quarter: 2024Q2

REPORT INFORMATION
  Report Type: Spontaneous
  Country: PL (occurrence: PL)
  Receive Date: 20240314
  Receipt Date: 20240523
  Transmission Date: 20240716
  Serious: Yes (Other)
  Sender: FDA-Public Use
  Company Number: PL-ROCHE-3112501

PATIENT
  Age: 58 Year
  Sex: Female
  Weight: 66 kg

DRUGS (14)
  1. CARBOPLATIN [Suspect]
     Active Substance: CARBOPLATIN
     Indication: Small cell lung cancer extensive stage
     Dosage: 700 MILLIGRAM
     Route: 065
     Dates: start: 20211213
  2. ATEZOLIZUMAB [Suspect]
     Active Substance: ATEZOLIZUMAB
     Indication: Small cell lung cancer extensive stage
     Dosage: 1200 MILLIGRAM
     Route: 042
     Dates: start: 20211122
  3. ATEZOLIZUMAB [Suspect]
     Active Substance: ATEZOLIZUMAB
     Dosage: 1200 MILLIGRAM
     Route: 042
     Dates: start: 20211213
  4. ETOPOSIDE [Suspect]
     Active Substance: ETOPOSIDE
     Indication: Small cell lung cancer extensive stage
     Dosage: 495 MILLIGRAM
     Route: 042
     Dates: start: 20211213
  5. CYCLOPHOSPHAMIDE [Concomitant]
     Active Substance: CYCLOPHOSPHAMIDE
     Indication: Product used for unknown indication
     Dosage: UNK
     Route: 065
     Dates: start: 20230824, end: 20231009
  6. DOXORUBICIN [Concomitant]
     Active Substance: DOXORUBICIN
     Indication: Product used for unknown indication
     Dosage: UNK
     Route: 065
     Dates: start: 20230824, end: 20231009
  7. ENOXAPARIN [Concomitant]
     Active Substance: ENOXAPARIN
     Indication: Prophylaxis
     Dosage: UNK
     Route: 065
     Dates: start: 20211213
  8. TOPOTECAN [Concomitant]
     Active Substance: TOPOTECAN HYDROCHLORIDE
     Indication: Product used for unknown indication
     Dosage: UNK
     Route: 065
     Dates: start: 20230227
  9. MEGESTROLI ACETAS [Concomitant]
     Indication: Decreased appetite
     Dosage: UNK
     Route: 065
     Dates: start: 20220622
  10. PREDNISONE [Concomitant]
     Active Substance: PREDNISONE
     Indication: Hypothyroidism
     Dosage: UNK
     Route: 065
     Dates: start: 20220420
  11. ATEZOLIZUMAB [Concomitant]
     Active Substance: ATEZOLIZUMAB
     Indication: Product used for unknown indication
     Dosage: 1200 MILLIGRAM
     Route: 065
     Dates: start: 20211122
  12. CISPLATIN [Concomitant]
     Active Substance: CISPLATIN
     Indication: Product used for unknown indication
     Dosage: UNK
     Route: 065
     Dates: start: 20220922
  13. INSULIN NOS [Concomitant]
     Active Substance: INSULIN NOS
     Indication: Product used for unknown indication
     Dosage: UNK
     Route: 065
     Dates: start: 20220530
  14. VINCRISTINE [Concomitant]
     Active Substance: VINCRISTINE
     Indication: Product used for unknown indication
     Dosage: UNK
     Route: 065
     Dates: start: 20230824

REACTIONS (4)
  - Hepatotoxicity [Recovered/Resolved]
  - Hypothyroidism [Recovering/Resolving]
  - Diarrhoea [Recovered/Resolved]
  - Tongue fungal infection [Recovered/Resolved]

NARRATIVE: CASE EVENT DATE: 20220516
